FAERS Safety Report 9870449 (Version 1)
Quarter: 2014Q1

REPORT INFORMATION
  Report Type: Spontaneous
  Country: US (occurrence: None)
  Receive Date: 20140204
  Receipt Date: 20140204
  Transmission Date: 20141002
  Serious: Yes (Life-Threatening, Hospitalization)
  Sender: FDA-Public Use
  Company Number: None

PATIENT
  Age: 87 Year
  Sex: Female
  Weight: 63.5 kg

DRUGS (1)
  1. AVELOX 400MG BAYER HEALTHCARE PHARMACEUTICALS [Suspect]
     Indication: PNEUMONIA
     Dosage: 1  AT BEDTIME  TAKEN BY MOUTH
     Route: 048

REACTIONS (6)
  - Agitation [None]
  - Diarrhoea [None]
  - Asthenia [None]
  - Abdominal distension [None]
  - Nervousness [None]
  - Pain [None]
